FAERS Safety Report 20383551 (Version 1)
Quarter: 2022Q1

REPORT INFORMATION
  Report Type: Spontaneous
  Country: US (occurrence: None)
  Receive Date: 20220126
  Receipt Date: 20220126
  Transmission Date: 20220423
  Serious: Yes (Hospitalization)
  Sender: FDA-Public Use
  Company Number: None

PATIENT
  Age: 86 Year
  Sex: Female
  Weight: 106.37 kg

DRUGS (1)
  1. SOTROVIMAB [Suspect]
     Active Substance: SOTROVIMAB

REACTIONS (6)
  - Decreased appetite [None]
  - Nausea [None]
  - Diarrhoea [None]
  - Mental status changes [None]
  - Acute respiratory failure [None]
  - White blood cell count increased [None]

NARRATIVE: CASE EVENT DATE: 20220126
